FAERS Safety Report 15540774 (Version 1)
Quarter: 2018Q4

REPORT INFORMATION
  Report Type: Spontaneous
  Country: US (occurrence: US)
  Receive Date: 20181023
  Receipt Date: 20181023
  Transmission Date: 20190205
  Serious: No
  Sender: FDA-Public Use
  Company Number: US-TEVA-2018-US-965173

PATIENT
  Age: 39 Year
  Sex: Female

DRUGS (1)
  1. JUNEL [Suspect]
     Active Substance: ETHINYL ESTRADIOL\NORETHINDRONE ACETATE
     Indication: CONTRACEPTION
     Dosage: 1 MG/20 MCG
     Route: 065
     Dates: start: 201808

REACTIONS (3)
  - Menstruation irregular [Unknown]
  - Inappropriate schedule of product administration [Unknown]
  - Product dose omission [Unknown]

NARRATIVE: CASE EVENT DATE: 201808
